FAERS Safety Report 7004024-X (Version None)
Quarter: 2010Q3

REPORT INFORMATION
  Report Type: 
  Country: None (occurrence: None)
  Receive Date: 20100920
  Receipt Date: 20100114
  Transmission Date: 20110219
  Serious: No
  Sender: FDA-Public Use
  Company Number: US-WYE-H13010210

PATIENT
  Age: 76 Year
  Sex: Female

DRUGS (1)
  1. PRISTIQ [Suspect]
     Indication: MENOPAUSAL SYMPTOMS
     Route: 048
     Dates: start: 20100101

REACTIONS (1)
  - DIARRHOEA [None]
